FAERS Safety Report 4720544-2 (Version None)
Quarter: 2005Q3

REPORT INFORMATION
  Report Type: 
  Country: None (occurrence: None)
  Receive Date: 20050719
  Receipt Date: 20050406
  Transmission Date: 20060218
  Serious: Yes (Other)
  Sender: FDA-Public Use
  Company Number: 2005056292

PATIENT
  Sex: 0

DRUGS (2)
  1. CELEBREX [Suspect]
     Indication: ILL-DEFINED DISORDER
     Route: 065
  2. ACE INHIBITOR NOS (ACE INHIBITOR NOS) [Concomitant]

REACTIONS (1)
  - ANGIONEUROTIC OEDEMA [None]
